FAERS Safety Report 12189656 (Version 1)
Quarter: 2016Q1

REPORT INFORMATION
  Report Type: Spontaneous
  Country: US (occurrence: US)
  Receive Date: 20160318
  Receipt Date: 20160318
  Transmission Date: 20160526
  Serious: Yes (Other)
  Sender: FDA-Public Use
  Company Number: US-009507513-1203USA02940

PATIENT
  Sex: Female

DRUGS (4)
  1. ARMOUR THYROID [Concomitant]
     Active Substance: THYROID, PORCINE
     Route: 048
  2. METFORMIN [Concomitant]
     Active Substance: METFORMIN HYDROCHLORIDE
  3. VYTORIN [Suspect]
     Active Substance: EZETIMIBE\SIMVASTATIN
     Indication: BLOOD CHOLESTEROL INCREASED
     Dosage: 10/40 MG, ONCE DAILY IN THE EVENING
     Route: 048
  4. ESTROGEN NOS [Concomitant]
     Active Substance: ESTROGENS

REACTIONS (4)
  - Myalgia [Not Recovered/Not Resolved]
  - Drug administration error [Unknown]
  - Protein urine present [Not Recovered/Not Resolved]
  - Chronic kidney disease [Not Recovered/Not Resolved]
